FAERS Safety Report 7889289-4 (Version None)
Quarter: 2011Q4

REPORT INFORMATION
  Report Type: 
  Country: None (occurrence: None)
  Receive Date: 20111103
  Receipt Date: 20111025
  Transmission Date: 20120403
  Serious: Yes (Death)
  Sender: FDA-Public Use
  Company Number: US-CELGENEUS-163-21880-11071038

PATIENT
  Sex: Female

DRUGS (13)
  1. NASACORT [Concomitant]
     Dosage: 1
     Route: 045
     Dates: start: 20110101
  2. URISPAS [Concomitant]
     Dosage: 1
     Route: 048
     Dates: start: 20100101
  3. ZYRTEC [Concomitant]
     Dosage: 1
     Route: 048
     Dates: start: 20100101
  4. HYDROCHLOROTHIAZIDE [Concomitant]
     Dosage: 2
     Route: 048
     Dates: start: 20110101
  5. FLOVENT [Concomitant]
     Route: 055
  6. DONNATAL [Concomitant]
     Dosage: 0.0194MG/0.1037MG/16.2MG/0.0065MG
     Route: 048
     Dates: start: 20100101
  7. LASIX [Concomitant]
     Dosage: 1
     Route: 048
     Dates: start: 20110101
  8. HYDROCHLOROTHIAZIDE [Concomitant]
     Route: 048
     Dates: start: 20090610
  9. LEVOBUNOLOL [Concomitant]
     Dosage: 1 DROP
     Route: 047
     Dates: start: 20080101
  10. OMEPRAZOLE [Concomitant]
     Dosage: 1
     Route: 048
     Dates: start: 20110101
  11. REVLIMID [Suspect]
     Indication: MULTIPLE MYELOMA
     Dosage: 25 MILLIGRAM
     Route: 048
     Dates: start: 20090507, end: 20090608
  12. TEMAZEPAM [Concomitant]
     Dosage: 30 MILLIGRAM
     Route: 048
     Dates: start: 20110101
  13. ZOFRAN [Concomitant]
     Dosage: 1
     Route: 048
     Dates: start: 20110101

REACTIONS (2)
  - DIZZINESS [None]
  - MULTIPLE MYELOMA [None]
